FAERS Safety Report 11652964 (Version 2)
Quarter: 2015Q4

REPORT INFORMATION
  Report Type: Spontaneous
  Country: GB (occurrence: GB)
  Receive Date: 20151022
  Receipt Date: 20151125
  Transmission Date: 20160304
  Serious: Yes (Disabling, Other)
  Sender: FDA-Public Use
  Company Number: GB-GLAXOSMITHKLINE-GB2015149221

PATIENT
  Age: 21 Year
  Sex: Female
  Weight: 66.67 kg

DRUGS (7)
  1. PARACETAMOL [Concomitant]
     Active Substance: ACETAMINOPHEN
  2. SALBUTAMOL [Concomitant]
     Active Substance: ALBUTEROL
  3. OMEPRAZOLE. [Concomitant]
     Active Substance: OMEPRAZOLE
  4. MEFENAMIC ACID. [Concomitant]
     Active Substance: MEFENAMIC ACID
  5. AMITRIPTYLINE [Concomitant]
     Active Substance: AMITRIPTYLINE
  6. SERETIDE [Suspect]
     Active Substance: FLUTICASONE FUROATE\SALMETEROL XINAFOATE
     Indication: ASTHMA
     Dosage: 125 ?G, UNK
     Route: 055
     Dates: start: 201107, end: 201207
  7. CITALOPRAM [Concomitant]
     Active Substance: CITALOPRAM HYDROBROMIDE

REACTIONS (9)
  - Pneumonia [Unknown]
  - Nasopharyngitis [Recovered/Resolved with Sequelae]
  - Lower respiratory tract infection [Recovered/Resolved with Sequelae]
  - Cough [Recovered/Resolved with Sequelae]
  - Condition aggravated [Unknown]
  - Pulmonary fibrosis [Unknown]
  - Infection susceptibility increased [Recovered/Resolved]
  - Oropharyngeal pain [Recovered/Resolved with Sequelae]
  - Rhinorrhoea [Recovered/Resolved with Sequelae]
